FAERS Safety Report 9218020 (Version 1)
Quarter: 2013Q2

REPORT INFORMATION
  Report Type: Report from Study
  Country: DE (occurrence: DE)
  Receive Date: 20130408
  Receipt Date: 20130408
  Transmission Date: 20140414
  Serious: Yes (Hospitalization)
  Sender: FDA-Public Use
  Company Number: DE-TEVA-396475ISR

PATIENT
  Age: 70 Year
  Sex: Female
  Weight: 62 kg

DRUGS (4)
  1. PACLITAXEL [Suspect]
     Indication: OVARIAN CANCER
     Dosage: 301 MILLIGRAM DAILY; LAST DOSE PRIOR TO SAE WAS TAKEN ON 31-DEC-2012
     Route: 042
     Dates: start: 20121029, end: 20130101
  2. CARBOPLATIN [Suspect]
     Indication: OVARIAN CANCER
     Dosage: 522.3 MILLIGRAM DAILY; LAST DOSE PRIOR TO SAE WAS TAKEN ON 31-DEC-2012
     Route: 042
     Dates: start: 20121029, end: 20130101
  3. BEVACIZUMAB [Suspect]
     Indication: OVARIAN CANCER
     Dosage: 15 MG/KG DAILY; LAST DOSE PRIOR TO SAE WAS TAKEN ON 31-DEC-2012
     Route: 042
     Dates: start: 20121029, end: 20130101
  4. GRANOCYTE [Concomitant]
     Indication: LEUKOPENIA
     Dosage: LAST DOSE PRIOR TO SAE WAS TAKEN ON 08-JAN-2013
     Route: 058
     Dates: start: 20130103

REACTIONS (2)
  - Pancytopenia [Recovered/Resolved]
  - Cardiomyopathy [Unknown]
